FAERS Safety Report 9705577 (Version 2)
Quarter: 2015Q3

REPORT INFORMATION
  Report Type: Spontaneous
  Country: US (occurrence: US)
  Receive Date: 20131122
  Receipt Date: 20150803
  Transmission Date: 20151125
  Serious: No
  Sender: FDA-Public Use
  Company Number: US-GILEAD-2008-0017004

PATIENT
  Age: 49 Year
  Sex: Male

DRUGS (3)
  1. REVATIO [Concomitant]
     Active Substance: SILDENAFIL CITRATE
     Route: 048
  2. LETAIRIS [Suspect]
     Active Substance: AMBRISENTAN
     Route: 048
     Dates: start: 20080624
  3. LETAIRIS [Suspect]
     Active Substance: AMBRISENTAN
     Route: 048
     Dates: end: 20080616

REACTIONS (1)
  - Headache [None]

NARRATIVE: CASE EVENT DATE: 20080601
